FAERS Safety Report 8486141-0 (Version None)
Quarter: 2012Q3

REPORT INFORMATION
  Report Type: 
  Country: None (occurrence: None)
  Receive Date: 20120703
  Receipt Date: 20120621
  Transmission Date: 20120928
  Serious: Yes (Other)
  Sender: FDA-Public Use
  Company Number: US-SANOFI-AVENTIS-2012SA046072

PATIENT
  Sex: Male

DRUGS (1)
  1. LANTUS [Suspect]
     Route: 058

REACTIONS (3)
  - CEREBROVASCULAR ACCIDENT [None]
  - TREMOR [None]
  - ASTHENIA [None]
